FAERS Safety Report 6284877-3 (Version None)
Quarter: 2009Q3

REPORT INFORMATION
  Report Type: 
  Country: None (occurrence: None)
  Receive Date: 20090727
  Receipt Date: 20090716
  Transmission Date: 20100115
  Serious: Yes (Hospitalization)
  Sender: FDA-Public Use
  Company Number: B0584296A

PATIENT
  Sex: Female
  Weight: 60 kg

DRUGS (7)
  1. ONDANSETRON HCL [Suspect]
     Dosage: 8MGM2 CYCLIC
     Route: 048
     Dates: start: 20090311
  2. AVASTIN [Suspect]
     Dosage: 285MGM2 CYCLIC
     Route: 042
     Dates: start: 20090311
  3. CAMPTOSAR [Suspect]
     Dosage: 25MGM2 CYCLIC
     Route: 042
     Dates: start: 20090311
  4. FLUOROURACIL [Suspect]
     Route: 042
     Dates: start: 20090311
  5. FOLINATE DE CALCIUM [Suspect]
     Dosage: 660MGM2 CYCLIC
     Route: 042
     Dates: start: 20090311
  6. SOLU-MEDROL [Suspect]
     Dosage: 60MGM2 CYCLIC
     Route: 042
     Dates: start: 20090311
  7. LEVOTHYROX [Concomitant]
     Indication: HYPOTHYROIDISM
     Route: 065

REACTIONS (2)
  - JUGULAR VEIN THROMBOSIS [None]
  - SUPERIOR VENA CAVAL OCCLUSION [None]
